FAERS Safety Report 25899437 (Version 1)
Quarter: 2025Q4

REPORT INFORMATION
  Report Type: Report from Study
  Country: GB (occurrence: GB)
  Receive Date: 20251009
  Receipt Date: 20251009
  Transmission Date: 20260117
  Serious: Yes (Hospitalization, Other)
  Sender: ABBVIE
  Company Number: GB-ABBVIE-6486621

PATIENT
  Age: 84 Year
  Sex: Male
  Weight: 90.4 kg

DRUGS (17)
  1. SKYRIZI [Suspect]
     Active Substance: RISANKIZUMAB-RZAA
     Indication: Psoriasis
     Route: 058
     Dates: start: 20240409
  2. SOLIFENACIN SUCCINATE [Concomitant]
     Active Substance: SOLIFENACIN SUCCINATE
     Indication: Product used for unknown indication
     Dates: start: 20220914
  3. BETAHISTINE [Concomitant]
     Active Substance: BETAHISTINE
     Indication: Product used for unknown indication
     Dates: start: 20140214
  4. ATORVASTATIN [Concomitant]
     Active Substance: ATORVASTATIN
     Indication: Product used for unknown indication
     Dates: start: 20141118
  5. ACETAMINOPHEN\CODEINE PHOSPHATE [Concomitant]
     Active Substance: ACETAMINOPHEN\CODEINE PHOSPHATE
     Indication: Product used for unknown indication
     Dates: start: 20150118
  6. FINASTERIDE [Concomitant]
     Active Substance: FINASTERIDE
     Indication: Product used for unknown indication
     Dates: start: 20150624
  7. RIVAROXABAN [Concomitant]
     Active Substance: RIVAROXABAN
     Indication: Product used for unknown indication
  8. TAMSULOSIN HYDROCHLORIDE [Concomitant]
     Active Substance: TAMSULOSIN HYDROCHLORIDE
     Indication: Product used for unknown indication
     Dates: start: 20170926
  9. BECLOMETHASONE\FORMOTEROL [Concomitant]
     Active Substance: BECLOMETHASONE\FORMOTEROL
     Indication: Product used for unknown indication
     Dates: start: 20190118
  10. OMEPRAZOLE [Concomitant]
     Active Substance: OMEPRAZOLE
     Indication: Product used for unknown indication
     Dates: start: 20200605
  11. CLOBETASOL [Concomitant]
     Active Substance: CLOBETASOL
     Indication: Product used for unknown indication
     Dates: start: 20200605
  12. ELOCON [Concomitant]
     Active Substance: MOMETASONE FUROATE
     Indication: Product used for unknown indication
     Dates: start: 20210212
  13. TRAVOPROST [Concomitant]
     Active Substance: TRAVOPROST
     Indication: Product used for unknown indication
     Dates: start: 20210212
  14. AMLODIPINE [Concomitant]
     Active Substance: AMLODIPINE BESYLATE
     Indication: Product used for unknown indication
     Dates: start: 20220909
  15. Dermovate NN [Concomitant]
     Indication: Product used for unknown indication
     Dates: start: 20250819
  16. COVID-19 Vaccine [Concomitant]
     Indication: Product used for unknown indication
     Dosage: COVID-19 VACCINE (COMIRNATY OMICRONXBB, BIONTECH - PFIZER).
     Dates: start: 20241112, end: 20241112
  17. COVID-19 Vaccine [Concomitant]
     Indication: Product used for unknown indication
     Dosage: COVID-19 VACCINE (MODERNA SPIKEVAX )
     Dates: start: 20250405, end: 20250405

REACTIONS (9)
  - Dizziness [Recovered/Resolved]
  - Erythema [Unknown]
  - Increased tendency to bruise [Unknown]
  - Back pain [Recovered/Resolved]
  - Hyperhidrosis [Unknown]
  - Anaemia [Unknown]
  - Hypoacusis [Unknown]
  - Deafness [Unknown]
  - Palpitations [Unknown]

NARRATIVE: CASE EVENT DATE: 20240930
